FAERS Safety Report 13707194 (Version 2)
Quarter: 2017Q3

REPORT INFORMATION
  Report Type: Spontaneous
  Country: CN (occurrence: CN)
  Receive Date: 20170630
  Receipt Date: 20170714
  Transmission Date: 20171127
  Serious: Yes (Other)
  Sender: FDA-Public Use
  Company Number: CN-PFIZER INC-2017282148

PATIENT
  Age: 53 Year
  Sex: Female
  Weight: 52.5 kg

DRUGS (2)
  1. PHARMORUBICIN [Suspect]
     Active Substance: EPIRUBICIN
     Indication: CHEMOTHERAPY
     Dosage: 140 MG, CYCLIC (ONCE A DAY; D1; THREE PERIODS)
     Route: 041
     Dates: start: 20170304, end: 20170304
  2. CYCLOPHOSPHAMIDE. [Concomitant]
     Active Substance: CYCLOPHOSPHAMIDE
     Indication: CHEMOTHERAPY
     Dosage: 0.8 G, CYCLIC (ONCE A DAY; D1; THREE PERIODS)
     Route: 041
     Dates: start: 20170304, end: 20170304

REACTIONS (1)
  - Hepatic function abnormal [Recovering/Resolving]

NARRATIVE: CASE EVENT DATE: 20170323
